FAERS Safety Report 19288578 (Version 2)
Quarter: 2021Q2

REPORT INFORMATION
  Report Type: Spontaneous
  Country: BR (occurrence: BR)
  Receive Date: 20210522
  Receipt Date: 20210605
  Transmission Date: 20210717
  Serious: Yes (Other)
  Sender: FDA-Public Use
  Company Number: NVSC2021BR109946

PATIENT
  Age: 63 Year
  Sex: Female
  Weight: 72 kg

DRUGS (5)
  1. ALDACTONE [Concomitant]
     Active Substance: SPIRONOLACTONE
     Indication: CARDIAC FAILURE
     Dosage: 25 MG, QD (START DATE: YEARS AGO)
     Route: 048
  2. ENTRESTO [Suspect]
     Active Substance: SACUBITRIL\VALSARTAN
     Indication: CARDIAC FAILURE
     Dosage: 1 DF, BID
     Route: 048
     Dates: start: 202101
  3. SOMALGIN CARDIO [Concomitant]
     Active Substance: ASPIRIN\DIHYDROXYALUMINUM AMINOACETATE ANHYDROUS\MAGNESIUM CARBONATE
     Indication: CARDIAC FAILURE
     Dosage: 10 MG, BID
     Route: 065
  4. ENTRESTO [Suspect]
     Active Substance: SACUBITRIL\VALSARTAN
     Indication: CARDIAC DISORDER
     Dosage: UNK
     Route: 065
  5. SELOZOK [Concomitant]
     Active Substance: METOPROLOL SUCCINATE
     Indication: CARDIAC FAILURE
     Dosage: 30 MG, QD (START DATE: 3 YEARS AGO)
     Route: 048

REACTIONS (6)
  - Dyspnoea [Recovered/Resolved]
  - Product use in unapproved indication [Unknown]
  - Blood glucose increased [Recovered/Resolved]
  - Blindness [Unknown]
  - Malaise [Recovered/Resolved]
  - Cardiac failure [Unknown]

NARRATIVE: CASE EVENT DATE: 202104
